FAERS Safety Report 22940491 (Version 3)
Quarter: 2023Q4

REPORT INFORMATION
  Report Type: Spontaneous
  Country: ES (occurrence: ES)
  Receive Date: 20230913
  Receipt Date: 20231228
  Transmission Date: 20240109
  Serious: Yes (Other)
  Sender: FDA-Public Use
  Company Number: ES-SUN PHARMACEUTICAL INDUSTRIES LTD-2023RR-407923

PATIENT
  Age: 40 Year
  Sex: Female

DRUGS (2)
  1. FINGOLIMOD [Suspect]
     Active Substance: FINGOLIMOD
     Indication: Progressive multifocal leukoencephalopathy
     Dosage: UNK
     Route: 065
  2. METHYLPREDNISOLONE [Suspect]
     Active Substance: METHYLPREDNISOLONE
     Indication: Immune reconstitution inflammatory syndrome
     Dosage: UNK
     Route: 065

REACTIONS (4)
  - Lymphopenia [Unknown]
  - Immune reconstitution inflammatory syndrome [Unknown]
  - Drug ineffective [Unknown]
  - Progressive multifocal leukoencephalopathy [Unknown]
